FAERS Safety Report 5458106-4 (Version None)
Quarter: 2007Q3

REPORT INFORMATION
  Report Type: 
  Country: None (occurrence: None)
  Receive Date: 20070919
  Receipt Date: 20070906
  Transmission Date: 20080115
  Serious: No
  Sender: FDA-Public Use
  Company Number: US-JNJFOC-20070707204

PATIENT
  Sex: Female
  Weight: 135.63 kg

DRUGS (5)
  1. INVEGA [Suspect]
     Indication: PERSECUTORY DELUSION
     Route: 048
  2. INVEGA [Suspect]
     Indication: PARANOIA
     Route: 048
  3. INVEGA [Suspect]
     Indication: PSYCHOTIC DISORDER
     Route: 048
  4. INVEGA [Suspect]
     Indication: ANXIETY DISORDER
     Route: 048
  5. ALPRAZOLAM [Concomitant]
     Indication: ANXIETY
     Route: 048

REACTIONS (3)
  - FLANK PAIN [None]
  - HEMIPARESIS [None]
  - OEDEMA PERIPHERAL [None]
